FAERS Safety Report 4543029-5 (Version None)
Quarter: 2004Q4

REPORT INFORMATION
  Report Type: 
  Country: None (occurrence: None)
  Receive Date: 20041222
  Receipt Date: 20041207
  Transmission Date: 20050328
  Serious: Yes (Death, Hospitalization)
  Sender: FDA-Public Use
  Company Number: WSDF_00459

PATIENT
  Age: 86 Year
  Sex: Female

DRUGS (3)
  1. WINRHO SDF [Suspect]
     Indication: PROPHYLAXIS
     Dosage: 7000 MCG ONCE IV
     Route: 042
     Dates: start: 20041203, end: 20041203
  2. TYLENOL [Concomitant]
     Indication: DENTAL OPERATION
  3. DIPHENHYDRAMINE HCL [Concomitant]

REACTIONS (3)
  - ARTHRALGIA [None]
  - CEREBROVASCULAR ACCIDENT [None]
  - MYALGIA [None]
